FAERS Safety Report 17677204 (Version 1)
Quarter: 2020Q2

REPORT INFORMATION
  Report Type: Spontaneous
  Country: US (occurrence: US)
  Receive Date: 20200416
  Receipt Date: 20200416
  Transmission Date: 20200714
  Serious: No
  Sender: FDA-Public Use
  Company Number: US-BIOVITRUM-2020US0491

PATIENT
  Age: 8 Year
  Sex: Female

DRUGS (1)
  1. ANAKINRA [Suspect]
     Active Substance: ANAKINRA
     Indication: STILL^S DISEASE

REACTIONS (5)
  - Injection site bruising [Unknown]
  - Off label use [Unknown]
  - Injection site pain [Unknown]
  - Injection site swelling [Unknown]
  - Lung disorder [Not Recovered/Not Resolved]
